FAERS Safety Report 4358369-2 (Version None)
Quarter: 2004Q2

REPORT INFORMATION
  Report Type: 
  Country: None (occurrence: None)
  Receive Date: 20040511
  Receipt Date: 20040429
  Transmission Date: 20050107
  Serious: Yes (Hospitalization)
  Sender: FDA-Public Use
  Company Number: 04P-056-0259240-00

PATIENT
  Age: 49 Year
  Sex: Male

DRUGS (3)
  1. DEPAKOTE [Suspect]
     Indication: AFFECTIVE DISORDER
     Dosage: 500 MG, ORAL
     Route: 048
     Dates: start: 20031226, end: 20040101
  2. DEPAKOTE [Suspect]
     Indication: MANIA
     Dosage: 500 MG, ORAL
     Route: 048
     Dates: start: 20031226, end: 20040101
  3. HALOPERIDOL [Suspect]
     Indication: MANIA
     Dosage: 5 MG, 2 IN 1 D, ORAL
     Route: 048
     Dates: start: 20030101

REACTIONS (2)
  - CONFUSIONAL STATE [None]
  - DRUG INTERACTION [None]
